FAERS Safety Report 7707436-1 (Version None)
Quarter: 2011Q3

REPORT INFORMATION
  Report Type: 
  Country: None (occurrence: None)
  Receive Date: 20110824
  Receipt Date: 20110819
  Transmission Date: 20111222
  Serious: Yes (Other)
  Sender: FDA-Public Use
  Company Number: GB-PFIZER INC-2011193249

PATIENT
  Age: 53 Year
  Sex: Female

DRUGS (1)
  1. MEDROXYPROGESTERONE ACETATE [Suspect]
     Indication: MENOPAUSAL SYMPTOMS

REACTIONS (3)
  - BLOOD CHOLESTEROL INCREASED [None]
  - POSTMENOPAUSAL HAEMORRHAGE [None]
  - HYPERTENSION [None]
